FAERS Safety Report 20038836 (Version 2)
Quarter: 2022Q2

REPORT INFORMATION
  Report Type: Spontaneous
  Country: US (occurrence: None)
  Receive Date: 20211105
  Receipt Date: 20220504
  Transmission Date: 20220721
  Serious: Yes (Other)
  Sender: FDA-Public Use
  Company Number: 2021A791954

PATIENT
  Age: 65 Year
  Sex: Male

DRUGS (36)
  1. NEXIUM [Suspect]
     Active Substance: ESOMEPRAZOLE MAGNESIUM
     Indication: Gastrooesophageal reflux disease
     Route: 048
     Dates: start: 2003, end: 2021
  2. PRILOSEC [Suspect]
     Active Substance: OMEPRAZOLE MAGNESIUM
     Indication: Gastrooesophageal reflux disease
     Route: 048
     Dates: start: 2003, end: 2021
  3. PRILOSEC [Suspect]
     Active Substance: OMEPRAZOLE MAGNESIUM
     Indication: Gastrooesophageal reflux disease
     Dosage: GENERIC
     Route: 065
     Dates: start: 2007, end: 2020
  4. PRILOSEC OTC [Suspect]
     Active Substance: OMEPRAZOLE MAGNESIUM
     Indication: Gastrooesophageal reflux disease
     Route: 048
     Dates: start: 2003, end: 2021
  5. PROTONIX [Suspect]
     Active Substance: PANTOPRAZOLE SODIUM
     Indication: Gastrooesophageal reflux disease
     Route: 065
     Dates: start: 2003, end: 2021
  6. PROTONIX [Suspect]
     Active Substance: PANTOPRAZOLE SODIUM
     Indication: Gastrooesophageal reflux disease
     Dosage: GENERIC
     Route: 065
     Dates: start: 2011
  7. TRAMADOL [Concomitant]
     Active Substance: TRAMADOL
     Indication: Pain
     Dates: start: 2003, end: 2019
  8. AMITRIPTYLINE [Concomitant]
     Active Substance: AMITRIPTYLINE
     Indication: Neuropathy peripheral
     Dates: start: 2005, end: 2018
  9. CIPROFLOXACIN [Concomitant]
     Active Substance: CIPROFLOXACIN
     Indication: Infection
     Dates: start: 2005, end: 2007
  10. CELEBREX [Concomitant]
     Active Substance: CELECOXIB
     Indication: Pain
     Dates: start: 2004, end: 2005
  11. ZITHROMAX [Concomitant]
     Active Substance: AZITHROMYCIN DIHYDRATE
     Indication: Infection
     Dates: start: 2005
  12. PIROXICAM [Concomitant]
     Active Substance: PIROXICAM
     Indication: Pain
     Dates: start: 2006
  13. SIMVASTATIN [Concomitant]
     Active Substance: SIMVASTATIN
     Indication: Blood cholesterol
     Dates: start: 2007, end: 2018
  14. NEOMYCIN [Concomitant]
     Active Substance: NEOMYCIN
     Indication: Infection
     Dates: start: 2008
  15. QUININE [Concomitant]
     Active Substance: QUININE
     Indication: Muscle spasms
     Dates: start: 2003, end: 2005
  16. VOLTAREN [Concomitant]
     Active Substance: DICLOFENAC SODIUM
     Indication: Arthritis
     Dates: start: 2015
  17. TRIMETHOPRIM/ SULFAMMETHOXAZOLE [Concomitant]
     Indication: Infection
     Dates: start: 2016, end: 2017
  18. TORSEMIDE [Concomitant]
     Active Substance: TORSEMIDE
     Indication: Fluid retention
     Dates: start: 2017
  19. MOXIFLOXACIN [Concomitant]
     Active Substance: MOXIFLOXACIN
     Indication: Infection
     Dates: start: 2017
  20. VANCOMYCIN [Concomitant]
     Active Substance: VANCOMYCIN
     Indication: Infection
     Dates: start: 2017
  21. LISINOPRIL [Concomitant]
     Active Substance: LISINOPRIL
     Indication: Hypertension
     Dates: start: 2018, end: 2019
  22. FOLIC ACID [Concomitant]
     Active Substance: FOLIC ACID
     Dates: start: 2015
  23. BENADRYL [Concomitant]
     Active Substance: DIPHENHYDRAMINE HYDROCHLORIDE
     Indication: Hypersensitivity
  24. VITAMIN D [Concomitant]
     Active Substance: VITAMIN D NOS
     Indication: Vitamin D deficiency
     Dates: start: 2016
  25. TUMS [Concomitant]
     Active Substance: CALCIUM CARBONATE
     Dates: start: 2002
  26. ALKA-SELTZER [Concomitant]
     Active Substance: ANHYDROUS CITRIC ACID\ASPIRIN\SODIUM BICARBONATE
     Dates: start: 2002
  27. PEPTO-BISMOL [Concomitant]
     Active Substance: BISMUTH SUBSALICYLATE
     Dates: start: 2002
  28. ROLAIDS [Concomitant]
     Active Substance: CALCIUM CARBONATE\MAGNESIUM HYDROXIDE
     Dates: start: 2002
  29. ROLAIDS [Concomitant]
     Active Substance: CALCIUM CARBONATE\MAGNESIUM HYDROXIDE
     Dates: start: 2003, end: 2021
  30. DIALVYTE [Concomitant]
  31. NORCO [Concomitant]
     Active Substance: ACETAMINOPHEN\HYDROCODONE BITARTRATE
  32. MIDODRINE [Concomitant]
     Active Substance: MIDODRINE
  33. VITAMIN D3 [Concomitant]
     Active Substance: CHOLECALCIFEROL
  34. FERRIC POLYSACCHARIDE COMPLEX [Concomitant]
     Active Substance: FERRIC POLYSACCHARIDE COMPLEX
  35. GUAIFENESIN [Concomitant]
     Active Substance: GUAIFENESIN
  36. DOCUSATE [Concomitant]
     Active Substance: DOCUSATE

REACTIONS (6)
  - Acute kidney injury [Not Recovered/Not Resolved]
  - Chronic kidney disease [Not Recovered/Not Resolved]
  - End stage renal disease [Not Recovered/Not Resolved]
  - Renal failure [Unknown]
  - Nephrogenic anaemia [Unknown]
  - Gastrooesophageal reflux disease [Not Recovered/Not Resolved]

NARRATIVE: CASE EVENT DATE: 20160101
